FAERS Safety Report 9387035 (Version 1)
Quarter: 2013Q3

REPORT INFORMATION
  Report Type: Spontaneous
  Country: US (occurrence: US)
  Receive Date: 20130708
  Receipt Date: 20130708
  Transmission Date: 20140515
  Serious: No
  Sender: FDA-Public Use
  Company Number: US-BRISTOL-MYERS SQUIBB COMPANY-16862443

PATIENT
  Age: 71 Year
  Sex: Male

DRUGS (1)
  1. ABILIFY DISCMELT TABS [Suspect]
     Dosage: 1 DF = 2TABS
     Route: 048

REACTIONS (1)
  - Malaise [Unknown]
